FAERS Safety Report 10707254 (Version 1)
Quarter: 2015Q1

REPORT INFORMATION
  Report Type: Spontaneous
  Country: US (occurrence: None)
  Receive Date: 20150112
  Receipt Date: 20150112
  Transmission Date: 20150721
  Serious: Yes (Hospitalization, Other)
  Sender: FDA-Public Use
  Company Number: None

PATIENT
  Age: 11 Year
  Sex: Male
  Weight: 33.11 kg

DRUGS (1)
  1. STRATTERA [Suspect]
     Active Substance: ATOMOXETINE HYDROCHLORIDE
     Indication: ATTENTION DEFICIT/HYPERACTIVITY DISORDER
     Dosage: 2 PILLS ONCE DAILY ORAL
     Route: 048
     Dates: start: 20141009, end: 20150106

REACTIONS (12)
  - Panic attack [None]
  - Obsessive-compulsive disorder [None]
  - Abnormal behaviour [None]
  - Concussion [None]
  - Movement disorder [None]
  - Head injury [None]
  - Seizure [None]
  - Syncope [None]
  - Anxiety [None]
  - Loss of consciousness [None]
  - Fall [None]
  - Contusion [None]

NARRATIVE: CASE EVENT DATE: 20141019
